FAERS Safety Report 24186483 (Version 2)
Quarter: 2024Q4

REPORT INFORMATION
  Report Type: Report from Study
  Country: US (occurrence: US)
  Receive Date: 20240808
  Receipt Date: 20241005
  Transmission Date: 20250114
  Serious: Yes (Hospitalization, Other)
  Sender: NOVARTIS
  Company Number: US-002147023-NVSC2024US159644

PATIENT
  Age: 48 Year
  Sex: Female

DRUGS (1)
  1. KESIMPTA [Suspect]
     Active Substance: OFATUMUMAB
     Indication: Multiple sclerosis
     Dosage: 20 MG, QMO
     Route: 058
     Dates: start: 20240430

REACTIONS (6)
  - Multiple sclerosis [Unknown]
  - Hemiplegia [Unknown]
  - Gait inability [Unknown]
  - Speech disorder [Unknown]
  - Dysphagia [Unknown]
  - Blindness unilateral [Unknown]

NARRATIVE: CASE EVENT DATE: 20240708
